FAERS Safety Report 16217026 (Version 2)
Quarter: 2019Q3

REPORT INFORMATION
  Report Type: Spontaneous
  Country: BE (occurrence: BE)
  Receive Date: 20190419
  Receipt Date: 20190920
  Transmission Date: 20191004
  Serious: Yes (Hospitalization, Other)
  Sender: FDA-Public Use
  Company Number: PHHY2019BE088848

PATIENT
  Age: 27 Year
  Sex: Female

DRUGS (1)
  1. CETIRIZINE DIHYDROCHLORIDE [Suspect]
     Active Substance: CETIRIZINE HYDROCHLORIDE
     Indication: HYPERSENSITIVITY
     Dosage: 8 DF, UNK
     Route: 065

REACTIONS (4)
  - Social problem [Unknown]
  - Somnolence [Unknown]
  - Overdose [Unknown]
  - Paralysis [Unknown]

NARRATIVE: CASE EVENT DATE: 20190221
